FAERS Safety Report 21528031 (Version 1)
Quarter: 2022Q4

REPORT INFORMATION
  Report Type: Spontaneous
  Country: US (occurrence: US)
  Receive Date: 20221031
  Receipt Date: 20221031
  Transmission Date: 20230113
  Serious: No
  Sender: FDA-Public Use
  Company Number: US-RECKITT BENCKISER HEALTHCARE INT LIMITED-RB-090178-2022

PATIENT
  Age: 45 Year
  Sex: Male

DRUGS (2)
  1. MUCINEX MAXIMUM STRENGTH [Suspect]
     Active Substance: GUAIFENESIN
     Indication: Pyrexia
     Dosage: 2400 MILLIGRAM, SINGLE
     Route: 048
     Dates: end: 20220518
  2. MUCINEX MAXIMUM STRENGTH [Suspect]
     Active Substance: GUAIFENESIN
     Indication: Cough

REACTIONS (1)
  - Accidental overdose [Unknown]
